FAERS Safety Report 13802641 (Version 5)
Quarter: 2018Q1

REPORT INFORMATION
  Report Type: Spontaneous
  Country: JP (occurrence: JP)
  Receive Date: 20170727
  Receipt Date: 20180102
  Transmission Date: 20180508
  Serious: Yes (Other)
  Sender: FDA-Public Use
  Company Number: JP-009507513-1707JPN001285J

PATIENT
  Sex: Male
  Weight: 61 kg

DRUGS (10)
  1. VOGLIBOSE OD [Concomitant]
     Active Substance: VOGLIBOSE
     Dosage: 0.3 MG, TID
     Route: 048
  2. SALIPARA-CODEINE [Concomitant]
     Active Substance: CODEINE PHOSPHATE\PRUNUS SEROTINA BARK
     Indication: NON-SMALL CELL LUNG CANCER
     Dosage: 6.0 ML, TID
     Route: 048
  3. SENEGA [Concomitant]
     Indication: NON-SMALL CELL LUNG CANCER
     Dosage: 9.0 ML, TID
     Route: 048
  4. BETAMETHASONE. [Concomitant]
     Active Substance: BETAMETHASONE
     Indication: NON-SMALL CELL LUNG CANCER
     Dosage: 1.0 MG, BID
     Route: 048
  5. FASTIC [Concomitant]
     Active Substance: NATEGLINIDE
     Dosage: 90.0 MG, TID
     Route: 048
  6. LYRICA [Concomitant]
     Active Substance: PREGABALIN
     Indication: NON-SMALL CELL LUNG CANCER
     Dosage: 75.0 MG, BID
     Route: 048
  7. TENELIA [Concomitant]
     Active Substance: TENELIGLIPTIN
     Dosage: 20.0 MG, BID
     Route: 048
  8. KEYTRUDA [Suspect]
     Active Substance: PEMBROLIZUMAB
     Indication: NON-SMALL CELL LUNG CANCER
     Dosage: 200 MG, Q3W
     Route: 041
     Dates: start: 20170808, end: 20171108
  9. NEXIUM [Concomitant]
     Active Substance: ESOMEPRAZOLE MAGNESIUM
     Indication: PROPHYLAXIS
     Dosage: 20.0 MG, QD
     Route: 048
  10. MAGNESIUM OXIDE. [Concomitant]
     Active Substance: MAGNESIUM OXIDE
     Dosage: 250.0 MG, TID
     Route: 048

REACTIONS (1)
  - Interstitial lung disease [Recovered/Resolved]
